FAERS Safety Report 4565270-8 (Version None)
Quarter: 2005Q1

REPORT INFORMATION
  Report Type: 
  Country: None (occurrence: None)
  Receive Date: 20050131
  Receipt Date: 20050121
  Transmission Date: 20050727
  Serious: Yes (Hospitalization)
  Sender: FDA-Public Use
  Company Number: DE-ROCHE-393254

PATIENT
  Age: 64 Year
  Sex: Female

DRUGS (1)
  1. ROFERON-A [Suspect]
     Indication: MALIGNANT MELANOMA
     Dosage: REPORTED AS 3X9MIOIE/WEEK.
     Route: 065

REACTIONS (1)
  - PULMONARY OEDEMA [None]
